FAERS Safety Report 8900343 (Version 1)
Quarter: 2012Q4

REPORT INFORMATION
  Report Type: 
  Country: US (occurrence: US)
  Receive Date: 20121108
  Receipt Date: 20121108
  Transmission Date: 20130627
  Serious: No
  Sender: FDA-Public Use
  Company Number: US-AMGEN-USASP2012037863

PATIENT
  Age: 39 Year
  Sex: Female
  Weight: 48.53 kg

DRUGS (7)
  1. ENBREL [Suspect]
     Indication: PRODUCT USED FOR UNKNOWN INDICATION
     Dosage: 50 mg, qwk
     Route: 058
  2. FOSAMAX [Concomitant]
     Dosage: 70 mg, UNK
  3. LEFLUNOMIDE [Concomitant]
     Dosage: 10 mg, UNK
  4. FOLIC ACID [Concomitant]
     Dosage: 1 mg, UNK
  5. CELEXA                             /00582602/ [Concomitant]
  6. VITAMIN D3 [Concomitant]
  7. VITAMIN D /00107901/ [Concomitant]

REACTIONS (2)
  - Nephrolithiasis [Recovering/Resolving]
  - Injection site discolouration [Unknown]
